FAERS Safety Report 26169277 (Version 1)
Quarter: 2025Q4

REPORT INFORMATION
  Report Type: Report from Study
  Country: EU (occurrence: EU)
  Receive Date: 20251217
  Receipt Date: 20251217
  Transmission Date: 20260118
  Serious: Yes (Other)
  Sender: ROCHE
  Company Number: EU-ROCHE-10000328696

PATIENT
  Age: 85 Year
  Sex: Female

DRUGS (4)
  1. FARICIMAB [Suspect]
     Active Substance: FARICIMAB
     Indication: Neovascular age-related macular degeneration
     Dosage: DOSE CONCENTRATION: 120 MG/ML?ON 02-APR-2025, SHE RECEIVED MOST RECENT DOSE OF FARICIMAB 6 MG PRIOR TO AE.?DOSE LAST STUDY DRUG ADMIN PRIOR AE: 6MG
     Dates: start: 20240424
  2. BISOPROLOL [Concomitant]
     Active Substance: BISOPROLOL
     Indication: Hypertension
  3. RAMIPRIL [Concomitant]
     Active Substance: RAMIPRIL
     Indication: Hypertension
  4. PANTOPRAZOLE [Concomitant]
     Active Substance: PANTOPRAZOLE

REACTIONS (2)
  - Optic atrophy [Recovering/Resolving]
  - Eye haemorrhage [Recovering/Resolving]

NARRATIVE: CASE EVENT DATE: 20250625
